FAERS Safety Report 4536472-1 (Version None)
Quarter: 2004Q4

REPORT INFORMATION
  Report Type: 
  Country: None (occurrence: None)
  Receive Date: 20041220
  Receipt Date: 20041203
  Transmission Date: 20050328
  Serious: Yes (Other)
  Sender: FDA-Public Use
  Company Number: A03200404100

PATIENT
  Age: 62 Year
  Sex: Female
  Weight: 70.3075 kg

DRUGS (8)
  1. PLAVIX [Suspect]
     Indication: STENT PLACEMENT
     Dosage: 75 MG QD - ORAL
     Route: 048
     Dates: start: 20040904
  2. PLAVIX [Suspect]
     Indication: VASCULAR OCCLUSION
     Dosage: 75 MG QD - ORAL
     Route: 048
     Dates: start: 20040904
  3. HEPARIN [Suspect]
     Dosage: SUBCUTANEOUS
     Route: 058
     Dates: start: 20041001, end: 20041001
  4. SPIRONOLACTONE/HYDROCHLOROTHIAZIDE [Concomitant]
  5. DIAZEPAM [Concomitant]
  6. OMEPRAZOLE [Concomitant]
  7. ROSE (PETALS) [Concomitant]
  8. PROMETHAZINE HCL [Concomitant]

REACTIONS (7)
  - CLOSTRIDIUM COLITIS [None]
  - CONTUSION [None]
  - DEPRESSION [None]
  - INJECTION SITE MASS [None]
  - INJECTION SITE REACTION [None]
  - RECTAL HAEMORRHAGE [None]
  - REFUSAL OF TREATMENT BY PATIENT [None]
